FAERS Safety Report 9628134 (Version 1)
Quarter: 2013Q4

REPORT INFORMATION
  Report Type: Spontaneous
  Country: ES (occurrence: ES)
  Receive Date: 20131017
  Receipt Date: 20131017
  Transmission Date: 20140711
  Serious: Yes (Other)
  Sender: FDA-Public Use
  Company Number: ES-009507513-1310ESP006316

PATIENT
  Age: 82 Year
  Sex: Female

DRUGS (1)
  1. REXER FLAS [Suspect]
     Indication: DEPRESSION
     Dosage: 15 MG
     Route: 048
     Dates: start: 20131001

REACTIONS (4)
  - Lethargy [Unknown]
  - Somnolence [Unknown]
  - Hypotension [Unknown]
  - Dry mouth [Unknown]
